FAERS Safety Report 8526872 (Version 2)
Quarter: 2012Q4

REPORT INFORMATION
  Report Type: 
  Country: FR (occurrence: FR)
  Receive Date: 20120424
  Receipt Date: 20121130
  Transmission Date: 20130627
  Serious: Yes (Hospitalization, Other)
  Sender: FDA-Public Use
  Company Number: PHHY2012FR033386

PATIENT
  Age: 80 Year
  Sex: Male
  Weight: 72 kg

DRUGS (14)
  1. VANCOMYCIN SANDOZ [Suspect]
     Indication: STAPHYLOCOCCAL INFECTION
     Dosage: 3 g, per 24 hours
     Dates: start: 20120303
  2. VANCOMYCIN SANDOZ [Suspect]
     Dosage: 42 mg/l, UNK
     Dates: start: 20120312
  3. VANCOMYCIN SANDOZ [Suspect]
     Dosage: 35 mg/l, UNK
     Dates: start: 20120313
  4. VANCOMYCIN SANDOZ [Suspect]
     Dosage: 31 mg/l, UNK
     Dates: start: 20120314
  5. VANCOMYCIN SANDOZ [Suspect]
     Dosage: 50 mg/l, UNK
     Dates: start: 20120316
  6. VANCOMYCIN SANDOZ [Suspect]
     Dosage: 40 mg/ml, UNK
     Dates: start: 20120317
  7. VANCOMYCIN SANDOZ [Suspect]
     Dosage: 30 mg/l, UNK
     Dates: start: 20120314
  8. VANCOMYCIN SANDOZ [Suspect]
     Dosage: 30 mg/l, UNK
     Dates: start: 20120318, end: 20120319
  9. SPIRIVA ^BOEHRINGER INGELHEIM^ [Concomitant]
     Dosage: 1 DF, QD
  10. SERETIDE ^ALLEN + HANBURYS LTD^ [Concomitant]
     Dosage: 2 DF, 1 in the morning and 1 in the evening
  11. AMLOR [Concomitant]
     Dosage: 1 DF,daily
  12. MOPRAL [Concomitant]
     Dosage: 40 mg, daily
  13. TAHOR [Concomitant]
     Dosage: 1 DF, daily
  14. KARDEGIC [Concomitant]
     Dosage: 1 DF, daily

REACTIONS (8)
  - Vascular purpura [Recovered/Resolved]
  - Necrosis [Unknown]
  - Pyrexia [Recovered/Resolved]
  - Petechiae [Unknown]
  - Sepsis [Unknown]
  - Blood creatinine increased [Recovered/Resolved]
  - Hypersensitivity [Unknown]
  - Overdose [Unknown]
